FAERS Safety Report 6710956-X (Version None)
Quarter: 2010Q2

REPORT INFORMATION
  Report Type: 
  Country: None (occurrence: None)
  Receive Date: 20100505
  Receipt Date: 20100422
  Transmission Date: 20101027
  Serious: Yes (Hospitalization)
  Sender: FDA-Public Use
  Company Number: US-RANBAXY-2010US-30539

PATIENT

DRUGS (5)
  1. VASOLAN [Suspect]
     Indication: VENTRICULAR TACHYCARDIA
     Dosage: 6-12 MG
     Route: 048
     Dates: start: 20080707, end: 20080715
  2. TAMBOCOR [Suspect]
     Indication: VENTRICULAR TACHYCARDIA
     Dosage: 24 MG
     Route: 048
     Dates: start: 20080707, end: 20080710
  3. LANDIOLOL [Suspect]
     Indication: VENTRICULAR TACHYCARDIA
     Route: 065
  4. INDERAL [Concomitant]
     Indication: DRUG USE FOR UNKNOWN INDICATION
     Route: 065
  5. LIDOCAINE [Concomitant]
     Indication: DRUG USE FOR UNKNOWN INDICATION
     Route: 065

REACTIONS (5)
  - DRUG INEFFECTIVE [None]
  - DRUG INTERACTION [None]
  - ELECTROCARDIOGRAM QT PROLONGED [None]
  - TORSADE DE POINTES [None]
  - VENTRICULAR TACHYCARDIA [None]
